FAERS Safety Report 6334468-0 (Version None)
Quarter: 2009Q3

REPORT INFORMATION
  Report Type: 
  Country: None (occurrence: None)
  Receive Date: 20090831
  Receipt Date: 20070619
  Transmission Date: 20100115
  Serious: Yes (Other)
  Sender: FDA-Public Use
  Company Number: US-ASTRAZENECA-2006UW27453

PATIENT
  Age: 46 Year
  Sex: Female
  Weight: 117 kg

DRUGS (26)
  1. SEROQUEL [Suspect]
     Indication: SCHIZOPHRENIA, PARANOID TYPE
     Dosage: 50 MG-1900 MG
     Route: 048
     Dates: start: 20020608, end: 20060801
  2. SEROQUEL [Suspect]
     Indication: BIPOLAR DISORDER
     Dosage: 50 MG-1900 MG
     Route: 048
     Dates: start: 20020608, end: 20060801
  3. SEROQUEL [Suspect]
     Indication: OBSESSIVE-COMPULSIVE DISORDER
     Dosage: 50 MG-1900 MG
     Route: 048
     Dates: start: 20020608, end: 20060801
  4. SEROQUEL [Suspect]
     Dosage: 200-600 MG
     Route: 048
     Dates: start: 20020901, end: 20060501
  5. SEROQUEL [Suspect]
     Dosage: 200-600 MG
     Route: 048
     Dates: start: 20020901, end: 20060501
  6. SEROQUEL [Suspect]
     Dosage: 200-600 MG
     Route: 048
     Dates: start: 20020901, end: 20060501
  7. ABILIFY [Concomitant]
     Dosage: 10-30 MG
     Dates: start: 20050501, end: 20051001
  8. ABILIFY [Concomitant]
     Dates: start: 20050501
  9. GEODON [Concomitant]
     Dates: start: 20050301
  10. RISPERDAL [Concomitant]
     Dosage: 1-3 MG
     Dates: start: 20040501, end: 20050901
  11. RISPERDAL [Concomitant]
     Dates: start: 20040601
  12. THORAZINE [Concomitant]
  13. ZYPREXA [Concomitant]
     Dates: start: 19991101, end: 20020701
  14. LEXAPRO [Concomitant]
     Dosage: 10-20 MG
     Dates: start: 20050301
  15. LEXAPRO [Concomitant]
     Dates: start: 20050301
  16. XANAX [Concomitant]
     Indication: AGITATION
     Dosage: 1-3 MG
     Route: 048
     Dates: start: 19950519
  17. XANAX [Concomitant]
     Indication: AFFECTIVE DISORDER
     Dosage: 1-3 MG
     Route: 048
     Dates: start: 19950519
  18. LORTAB [Concomitant]
     Indication: PAIN
     Dosage: STRENGTH 7.5/500 MG
     Dates: start: 19990224
  19. HYDROXYZINE [Concomitant]
     Dates: start: 20060731
  20. PAXIL [Concomitant]
     Dosage: 40-140 MG DAILY
     Route: 048
     Dates: start: 20000418
  21. PREVACID [Concomitant]
     Indication: GASTROOESOPHAGEAL REFLUX DISEASE
     Dosage: 15, 30 MG DISPENSED
     Route: 048
     Dates: start: 20000418
  22. AMBIEN [Concomitant]
     Indication: INSOMNIA
     Dates: start: 20031209
  23. TYLENOL (CAPLET) [Concomitant]
     Indication: HEADACHE
     Dates: start: 20031209
  24. TYLENOL (CAPLET) [Concomitant]
     Indication: PAIN
     Dates: start: 20031209
  25. LOTREL [Concomitant]
     Indication: HYPERTENSION
     Dosage: 5/20 CAPSULE MG DAILY
     Route: 048
     Dates: start: 20050420
  26. EFFEXOR XR [Concomitant]
     Dosage: 75,150 MG CAPSULE DISPENSED
     Dates: start: 20041104

REACTIONS (13)
  - ANGINA PECTORIS [None]
  - CARDIOMEGALY [None]
  - CHEST PAIN [None]
  - DIABETES MELLITUS [None]
  - DIABETIC KETOACIDOSIS [None]
  - HEADACHE [None]
  - HEPATIC CIRRHOSIS [None]
  - HEPATOMEGALY [None]
  - HYPERTRIGLYCERIDAEMIA [None]
  - NEUROLEPTIC MALIGNANT SYNDROME [None]
  - TRANSAMINASES INCREASED [None]
  - TYPE 2 DIABETES MELLITUS [None]
  - WEIGHT INCREASED [None]
